FAERS Safety Report 10272326 (Version 1)
Quarter: 2014Q2

REPORT INFORMATION
  Report Type: Spontaneous
  Country: US (occurrence: None)
  Receive Date: 20140630
  Receipt Date: 20140630
  Transmission Date: 20141212
  Serious: No
  Sender: FDA-Public Use
  Company Number: None

PATIENT
  Age: 37 Year
  Sex: Female
  Weight: 62.6 kg

DRUGS (4)
  1. GAMUNEX [Suspect]
     Indication: POLYNEUROPATHY IDIOPATHIC PROGRESSIVE
     Dates: start: 20140612
  2. GAMUNEX [Suspect]
  3. TYLENOL [Concomitant]
  4. BENADRYL [Concomitant]

REACTIONS (4)
  - Skin exfoliation [None]
  - Blister [None]
  - Scab [None]
  - Dry skin [None]
